FAERS Safety Report 4620546-0 (Version None)
Quarter: 2005Q1

REPORT INFORMATION
  Report Type: 
  Country: None (occurrence: None)
  Receive Date: 20050328
  Receipt Date: 20050315
  Transmission Date: 20050727
  Serious: Yes (Other)
  Sender: FDA-Public Use
  Company Number: FR-GLAXOSMITHKLINE-B0375258A

PATIENT
  Age: 50 Year
  Sex: Female

DRUGS (4)
  1. DEROXAT [Suspect]
     Indication: DEPRESSION
     Dosage: 20MG PER DAY
     Route: 048
     Dates: start: 20041207, end: 20050315
  2. OMEPRAZOLE [Concomitant]
     Dosage: 1UNIT PER DAY
     Route: 048
  3. XANAX [Concomitant]
     Dosage: .25MG PER DAY
  4. ANAFRANIL [Concomitant]
     Dosage: 25MG PER DAY

REACTIONS (2)
  - ABDOMINAL HAEMATOMA [None]
  - POST PROCEDURAL COMPLICATION [None]
